FAERS Safety Report 19403254 (Version 2)
Quarter: 2021Q3

REPORT INFORMATION
  Report Type: Spontaneous
  Country: JP (occurrence: JP)
  Receive Date: 20210610
  Receipt Date: 20210707
  Transmission Date: 20211014
  Serious: Yes (Hospitalization)
  Sender: FDA-Public Use
  Company Number: JP-ELI_LILLY_AND_COMPANY-JP202106001816

PATIENT
  Age: 62 Year
  Sex: Female

DRUGS (10)
  1. TAKEPRON [Concomitant]
     Active Substance: LANSOPRAZOLE
     Dosage: 15 MG, DAILY
  2. TRULICITY [Suspect]
     Active Substance: DULAGLUTIDE
     Indication: TYPE 2 DIABETES MELLITUS
     Dosage: UNK
     Route: 058
     Dates: start: 20200611
  3. AZILVA [Concomitant]
     Active Substance: AZILSARTAN KAMEDOXOMIL
     Dosage: 20 MG, DAILY
  4. METGLUCO [Concomitant]
     Active Substance: METFORMIN HYDROCHLORIDE
     Dosage: 500 MG, BID
  5. EMPERACIN [Concomitant]
     Dosage: 1 DOSAGE FORM
  6. CALBLOCK [Concomitant]
     Active Substance: AZELNIDIPINE
     Dosage: 16 MG, DAILY
  7. CRESTOR [Concomitant]
     Active Substance: ROSUVASTATIN CALCIUM
     Dosage: 2.5 MG, DAILY
  8. BILANOA [Concomitant]
     Active Substance: BILASTINE
     Dosage: 20 MG, DAILY
  9. DEBERZA [Concomitant]
     Active Substance: TOFOGLIFLOZIN
     Dosage: 20 MG, DAILY
  10. ALOSENN [SENNOSIDE A+B] [Concomitant]
     Dosage: 0.5 G, DAILY

REACTIONS (2)
  - Cholelithiasis [Unknown]
  - Wrong product stored [Unknown]

NARRATIVE: CASE EVENT DATE: 20200611
